FAERS Safety Report 4477735-8 (Version None)
Quarter: 2004Q4

REPORT INFORMATION
  Report Type: 
  Country: None (occurrence: None)
  Receive Date: 20041014
  Receipt Date: 20041001
  Transmission Date: 20050328
  Serious: Yes (Other)
  Sender: FDA-Public Use
  Company Number: 163-20785-04100150

PATIENT
  Sex: Male

DRUGS (4)
  1. THALIDOMIDE\PLACEBO (CAPSULES) [Suspect]
     Indication: PROSTATE CANCER STAGE 0
     Dosage: SEE IMAGE, ORAL
     Route: 048
     Dates: start: 20010723
  2. THALIDOMIDE\PLACEBO (CAPSULES) [Suspect]
     Indication: PROSTATE CANCER STAGE 0
     Dosage: SEE IMAGE, ORAL
     Route: 048
     Dates: start: 20020211
  3. THALIDOMIDE\PLACEBO (CAPSULES) [Suspect]
     Indication: PROSTATE CANCER STAGE 0
     Dosage: SEE IMAGE, ORAL
     Route: 048
     Dates: start: 20040419
  4. LEUPROLIDE ACETATE [Suspect]
     Indication: PROSTATE CANCER STAGE 0
     Dosage: SEE IMAGE, SC
     Route: 058

REACTIONS (20)
  - AMNESIA [None]
  - BLINDNESS TRANSIENT [None]
  - CHILLS [None]
  - CONSTIPATION [None]
  - DIARRHOEA [None]
  - DIZZINESS [None]
  - DRY MOUTH [None]
  - FATIGUE [None]
  - HEADACHE [None]
  - HOT FLUSH [None]
  - HYPERGLYCAEMIA [None]
  - HYPOPHOSPHATAEMIA [None]
  - LARYNGITIS [None]
  - NAUSEA [None]
  - NEUTROPHIL COUNT ABNORMAL [None]
  - PELVIC PAIN [None]
  - PERIPHERAL SENSORY NEUROPATHY [None]
  - PHOTOSENSITIVITY REACTION [None]
  - ROTATOR CUFF SYNDROME [None]
  - STRIDOR [None]
